FAERS Safety Report 18791727 (Version 3)
Quarter: 2025Q3

REPORT INFORMATION
  Report Type: Spontaneous
  Country: US (occurrence: US)
  Receive Date: 20210127
  Receipt Date: 20250731
  Transmission Date: 20251021
  Serious: No
  Sender: MERCK SHARP & DOHME LLC
  Company Number: US-009507513-2101USA007407

PATIENT
  Sex: Female

DRUGS (11)
  1. BELSOMRA [Suspect]
     Active Substance: SUVOREXANT
     Indication: Insomnia
     Dosage: DOSE DESCRIPTION : 5 MG, ONCE PER NIGHT, 30 MINUTES BEFORE BEDTIME?DAILY DOSE : 5 MILLIGRAM
     Route: 048
     Dates: start: 20210112
  2. BELSOMRA [Suspect]
     Active Substance: SUVOREXANT
     Indication: Insomnia
     Dosage: DOSE DESCRIPTION : 10 MILLIGRAM, ONCE PER NIGHT, 30 MINUTES BEFORE BEDTIME?DAILY DOSE : 10 MILLIGRAM
     Route: 048
     Dates: start: 2021
  3. BELSOMRA [Suspect]
     Active Substance: SUVOREXANT
     Indication: Insomnia
     Dosage: 10MG ONCE DAILY AT NIGHT
     Route: 048
  4. TEMAZEPAM [Concomitant]
     Active Substance: TEMAZEPAM
  5. MELATONIN [Suspect]
     Active Substance: MELATONIN
  6. TYLENOL [Suspect]
     Active Substance: ACETAMINOPHEN
  7. GABAPENTIN [Suspect]
     Active Substance: GABAPENTIN
  8. DIPHENHYDRAMINE HYDROCHLORIDE [Suspect]
     Active Substance: DIPHENHYDRAMINE HYDROCHLORIDE
  9. AMBIEN [Concomitant]
     Active Substance: ZOLPIDEM TARTRATE
  10. GEMFIBROZIL [Concomitant]
     Active Substance: GEMFIBROZIL
     Indication: Blood cholesterol increased
  11. MAGNESIUM [Concomitant]
     Active Substance: MAGNESIUM

REACTIONS (8)
  - Drug ineffective [Not Recovered/Not Resolved]
  - Pruritus [Not Recovered/Not Resolved]
  - Weight decreased [Not Recovered/Not Resolved]
  - Insomnia [Not Recovered/Not Resolved]
  - Bradykinesia [Not Recovered/Not Resolved]
  - Ill-defined disorder [Not Recovered/Not Resolved]
  - Nocturia [Not Recovered/Not Resolved]
  - Product use issue [Unknown]

NARRATIVE: CASE EVENT DATE: 20210101
